FAERS Safety Report 7335686-5 (Version None)
Quarter: 2011Q1

REPORT INFORMATION
  Report Type: 
  Country: None (occurrence: None)
  Receive Date: 20110307
  Receipt Date: 20110214
  Transmission Date: 20110831
  Serious: Yes (Life-Threatening, Hospitalization)
  Sender: FDA-Public Use
  Company Number: A0913428A

PATIENT
  Age: 45 Year
  Weight: 153 kg

DRUGS (2)
  1. PROMACTA [Suspect]
     Dosage: 25MG PER DAY
  2. HEPARIN [Concomitant]
     Route: 042

REACTIONS (2)
  - NO THERAPEUTIC RESPONSE [None]
  - PLATELET COUNT DECREASED [None]
